FAERS Safety Report 13396065 (Version 1)
Quarter: 2017Q2

REPORT INFORMATION
  Report Type: Spontaneous
  Country: US (occurrence: US)
  Receive Date: 20170403
  Receipt Date: 20170403
  Transmission Date: 20170830
  Serious: Yes (Life-Threatening, Hospitalization)
  Sender: FDA-Public Use
  Company Number: None

PATIENT
  Age: 80 Year
  Sex: Male
  Weight: 90 kg

DRUGS (1)
  1. WARFARIN [Suspect]
     Active Substance: WARFARIN
     Indication: THROMBOSIS PROPHYLAXIS
     Dosage: ?          OTHER FREQUENCY:MWF;?
     Route: 048
     Dates: start: 20170315, end: 20170324

REACTIONS (2)
  - International normalised ratio increased [None]
  - Incorrect dose administered [None]

NARRATIVE: CASE EVENT DATE: 20170324
